FAERS Safety Report 16168231 (Version 2)
Quarter: 2020Q4

REPORT INFORMATION
  Report Type: Spontaneous
  Country: IT (occurrence: IT)
  Receive Date: 20190408
  Receipt Date: 20201216
  Transmission Date: 20210113
  Serious: Yes (Hospitalization)
  Sender: FDA-Public Use
  Company Number: PHHY2019IT076389

PATIENT
  Age: 15 Year
  Sex: Male

DRUGS (2)
  1. OLANZAPINE. [Suspect]
     Active Substance: OLANZAPINE
     Indication: DRUG ABUSE
     Dosage: 0.1 G, TOTAL
     Route: 048
     Dates: start: 20190228, end: 20190228
  2. OLANZAPINE. [Suspect]
     Active Substance: OLANZAPINE
     Dosage: 20 MG
     Route: 048
     Dates: start: 20190228, end: 20190228

REACTIONS (9)
  - Sopor [Recovering/Resolving]
  - Hypokinesia [Recovering/Resolving]
  - Hypotension [Recovering/Resolving]
  - Asthenia [Recovering/Resolving]
  - Sinus bradycardia [Recovering/Resolving]
  - Negativism [Recovering/Resolving]
  - Drug abuse [Recovering/Resolving]
  - Expired product administered [Recovering/Resolving]
  - Bradyphrenia [Recovering/Resolving]

NARRATIVE: CASE EVENT DATE: 20190228
